FAERS Safety Report 7050035-8 (Version None)
Quarter: 2010Q4

REPORT INFORMATION
  Report Type: 
  Country: None (occurrence: None)
  Receive Date: 20101018
  Receipt Date: 20101007
  Transmission Date: 20110411
  Serious: No
  Sender: FDA-Public Use
  Company Number: US-JNJFOC-20101002375

PATIENT
  Sex: Male
  Weight: 90.72 kg

DRUGS (2)
  1. FENTANYL CITRATE [Suspect]
     Indication: NECK PAIN
     Dosage: NDC NUMBER: 0781-7244-55
     Route: 062
  2. FENTANYL CITRATE [Suspect]
     Indication: BACK PAIN
     Dosage: NDC NUMBER: 0781-7244-55
     Route: 062

REACTIONS (1)
  - DRUG ADMINISTERED AT INAPPROPRIATE SITE [None]
